FAERS Safety Report 10201127 (Version 1)
Quarter: 2014Q2

REPORT INFORMATION
  Report Type: Spontaneous
  Country: US (occurrence: US)
  Receive Date: 20140528
  Receipt Date: 20140528
  Transmission Date: 20141212
  Serious: No
  Sender: FDA-Public Use
  Company Number: US-PFIZER INC-2014143980

PATIENT
  Age: 72 Year
  Sex: Female

DRUGS (2)
  1. LYRICA [Suspect]
     Dosage: 100 MG, DAILY
     Dates: start: 20140522
  2. TRAMADOL HCL [Suspect]
     Indication: PAIN
     Dosage: UNK
     Dates: start: 2014

REACTIONS (4)
  - Drug ineffective [Unknown]
  - Insomnia [Unknown]
  - Feeling abnormal [Unknown]
  - Dizziness [Unknown]
